FAERS Safety Report 17679787 (Version 1)
Quarter: 2020Q2

REPORT INFORMATION
  Report Type: Spontaneous
  Country: CA (occurrence: CA)
  Receive Date: 20200417
  Receipt Date: 20200417
  Transmission Date: 20200714
  Serious: Yes (Hospitalization, Other)
  Sender: FDA-Public Use
  Company Number: CA-SAMSUNG BIOEPIS-SB-2020-12804

PATIENT
  Age: 58 Year
  Sex: Male

DRUGS (5)
  1. IMURAN [Concomitant]
     Active Substance: AZATHIOPRINE
     Indication: PRODUCT USED FOR UNKNOWN INDICATION
     Route: 048
  2. PREDNISONE. [Concomitant]
     Active Substance: PREDNISONE
     Indication: PRODUCT USED FOR UNKNOWN INDICATION
     Dosage: UNKNOWN
     Route: 065
  3. INFLIXIMAB [Suspect]
     Active Substance: INFLIXIMAB
     Indication: COLITIS ULCERATIVE
     Route: 042
  4. PREDNISONE. [Concomitant]
     Active Substance: PREDNISONE
     Route: 065
  5. PREDNISONE. [Concomitant]
     Active Substance: PREDNISONE
     Route: 065

REACTIONS (16)
  - Headache [Recovered/Resolved]
  - Drug level increased [Recovered/Resolved]
  - Pharyngitis [Recovered/Resolved]
  - Therapeutic product effect incomplete [Recovered/Resolved]
  - Balance disorder [Recovered/Resolved]
  - Dermatitis [Recovered/Resolved]
  - Nasopharyngitis [Recovered/Resolved]
  - Furuncle [Recovered/Resolved]
  - Malaise [Recovered/Resolved]
  - Rectal haemorrhage [Recovered/Resolved]
  - Fatigue [Recovered/Resolved]
  - Asthenia [Recovered/Resolved]
  - Gallbladder disorder [Recovered/Resolved]
  - Product use issue [Recovered/Resolved]
  - Abscess [Recovered/Resolved]
  - Off label use [Recovered/Resolved]
